FAERS Safety Report 26068571 (Version 1)
Quarter: 2025Q4

REPORT INFORMATION
  Report Type: Spontaneous
  Country: EU (occurrence: EU)
  Receive Date: 20251120
  Receipt Date: 20251120
  Transmission Date: 20260117
  Serious: Yes (Other)
  Sender: ALIMERA
  Company Number: EU-ALIMERA SCIENCES LIMITED-DE-A16013-25-000347

PATIENT

DRUGS (2)
  1. ILUVIEN [Suspect]
     Active Substance: FLUOCINOLONE ACETONIDE
     Indication: Uveitis
     Dosage: 0.25 MILLIGRAM, QD - RIGHT EYE
     Route: 031
     Dates: start: 20200610
  2. ILUVIEN [Suspect]
     Active Substance: FLUOCINOLONE ACETONIDE
     Dosage: 0.25 MILLIGRAM, QD - LEFT EYE
     Route: 031
     Dates: start: 20210203

REACTIONS (5)
  - Cystoid macular oedema [Unknown]
  - Corneal striae [Unknown]
  - Corneal oedema [Unknown]
  - Medical device removal [Unknown]
  - Device dislocation [Unknown]

NARRATIVE: CASE EVENT DATE: 20210226
